FAERS Safety Report 8085525-2 (Version None)
Quarter: 2012Q1

REPORT INFORMATION
  Report Type: 
  Country: None (occurrence: None)
  Receive Date: 20120128
  Receipt Date: 20110411
  Transmission Date: 20120608
  Serious: No
  Sender: FDA-Public Use
  Company Number: US-ABBOTT-11P-163-0711119-00

PATIENT
  Age: 62 Year
  Sex: Female

DRUGS (7)
  1. SIMVASTATIN [Concomitant]
     Indication: BLOOD CHOLESTEROL
  2. SINGULAIR [Concomitant]
     Indication: ASTHMA
  3. AMOLODIPINE [Concomitant]
     Indication: BLOOD PRESSURE
  4. CALCIUM CARBONATE [Concomitant]
     Indication: MINERAL SUPPLEMENTATION
     Dosage: 633
  5. HUMIRA [Suspect]
     Indication: CROHN'S DISEASE
     Dates: start: 20050601
  6. BENACAR [Concomitant]
     Indication: BLOOD PRESSURE
  7. ACTONEL [Concomitant]
     Indication: OSTEOPOROSIS

REACTIONS (4)
  - INCORRECT DOSE ADMINISTERED [None]
  - DEVICE MALFUNCTION [None]
  - INJECTION SITE HAEMATOMA [None]
  - INJECTION SITE PAIN [None]
